FAERS Safety Report 10408128 (Version 1)
Quarter: 2014Q3

REPORT INFORMATION
  Report Type: Report from Study
  Country: EG (occurrence: EG)
  Receive Date: 20140826
  Receipt Date: 20140826
  Transmission Date: 20150326
  Serious: Yes (Hospitalization)
  Sender: FDA-Public Use
  Company Number: EG-ROCHE-1454254

PATIENT
  Sex: Female

DRUGS (4)
  1. PEGASYS [Suspect]
     Active Substance: PEGINTERFERON ALFA-2A
     Route: 058
     Dates: start: 201406
  2. PEGASYS [Suspect]
     Active Substance: PEGINTERFERON ALFA-2A
     Indication: HEPATITIS C
     Dosage: STOPPED AFTER THE FIRST DOSE
     Route: 058
     Dates: start: 201402
  3. COPEGUS [Suspect]
     Active Substance: RIBAVIRIN
     Dosage: 6 TABLETS DAILY
     Route: 048
     Dates: start: 201406
  4. COPEGUS [Suspect]
     Active Substance: RIBAVIRIN
     Indication: HEPATITIS C
     Dosage: 6 TABLETS DAILY: STOPPED AFTER THE FIRST DOSE
     Route: 048
     Dates: start: 201402

REACTIONS (3)
  - Fatigue [Recovered/Resolved]
  - Syncope [Recovered/Resolved]
  - Dyspnoea [Recovered/Resolved]
